FAERS Safety Report 22040279 (Version 1)
Quarter: 2023Q1

REPORT INFORMATION
  Report Type: Spontaneous
  Country: FR (occurrence: FR)
  Receive Date: 20230227
  Receipt Date: 20230227
  Transmission Date: 20230417
  Serious: Yes (Other)
  Sender: FDA-Public Use
  Company Number: FR-RENAUDINFR-2023000047

PATIENT
  Age: 44 Year
  Sex: Female

DRUGS (1)
  1. EPINEPHRINE [Suspect]
     Active Substance: EPINEPHRINE
     Indication: Cardio-respiratory arrest
     Dosage: UNK
     Route: 065

REACTIONS (1)
  - Haemoperitoneum [Unknown]
